FAERS Safety Report 8179395-1 (Version None)
Quarter: 2012Q1

REPORT INFORMATION
  Report Type: 
  Country: None (occurrence: None)
  Receive Date: 20120302
  Receipt Date: 20120221
  Transmission Date: 20120608
  Serious: Yes (Hospitalization)
  Sender: FDA-Public Use
  Company Number: US-BAYER-2011-080890

PATIENT
  Age: 26 Year
  Sex: Female
  Weight: 84 kg

DRUGS (3)
  1. YAZ [Suspect]
     Indication: DYSMENORRHOEA
     Dosage: UNK
     Dates: start: 20100601, end: 20100601
  2. ANTIBIOTICS [Concomitant]
  3. YAZ [Suspect]
     Indication: MENORRHAGIA
     Dosage: UNK
     Dates: start: 20090101, end: 20090101

REACTIONS (5)
  - EMOTIONAL DISTRESS [None]
  - ASTHENIA [None]
  - PAIN [None]
  - PULMONARY EMBOLISM [None]
  - INJURY [None]
